FAERS Safety Report 5878169-1 (Version None)
Quarter: 2008Q3

REPORT INFORMATION
  Report Type: 
  Country: None (occurrence: None)
  Receive Date: 20080911
  Receipt Date: 20080902
  Transmission Date: 20090109
  Serious: Yes (Other)
  Sender: FDA-Public Use
  Company Number: JNJCH-2008023123

PATIENT
  Sex: Male

DRUGS (2)
  1. BENYLIN DRY COUGH DM [Suspect]
     Indication: COUGH
     Dosage: TEXT:UNSPECIFIED
     Route: 048
     Dates: start: 20080829, end: 20080901
  2. ACETAMINOPHEN [Suspect]
     Indication: HEADACHE
     Dosage: TEXT:UNSPECIFIED
     Route: 048

REACTIONS (1)
  - BLOOD URINE PRESENT [None]
